FAERS Safety Report 13824502 (Version 1)
Quarter: 2017Q3

REPORT INFORMATION
  Report Type: Spontaneous
  Country: US (occurrence: US)
  Receive Date: 20170801
  Receipt Date: 20170801
  Transmission Date: 20171127
  Serious: Yes (Hospitalization)
  Sender: FDA-Public Use
  Company Number: None

PATIENT
  Age: 60 Year
  Sex: Female
  Weight: 131.5 kg

DRUGS (1)
  1. ATORVASTATIN [Suspect]
     Active Substance: ATORVASTATIN
     Indication: ENDOMETRIAL CANCER
     Route: 048
     Dates: start: 20170630, end: 20170723

REACTIONS (3)
  - Increased tendency to bruise [None]
  - Hysterectomy [None]
  - Wound secretion [None]

NARRATIVE: CASE EVENT DATE: 20170731
